FAERS Safety Report 19390785 (Version 1)
Quarter: 2021Q2

REPORT INFORMATION
  Report Type: Report from Study
  Country: FR (occurrence: FR)
  Receive Date: 20210608
  Receipt Date: 20210608
  Transmission Date: 20210717
  Serious: Yes (Other)
  Sender: FDA-Public Use
  Company Number: FR-SEATTLE GENETICS-2021SGN03034

PATIENT
  Age: 51 Year
  Sex: Female

DRUGS (7)
  1. CAPECITABINE. [Suspect]
     Active Substance: CAPECITABINE
     Indication: HER2 POSITIVE BREAST CANCER
     Dosage: 2000 MG, QD
     Dates: end: 20210205
  2. CAPECITABINE. [Suspect]
     Active Substance: CAPECITABINE
     Dosage: 1500 UNK
     Route: 048
     Dates: start: 20210303
  3. TYVERB [Concomitant]
     Active Substance: LAPATINIB
     Dosage: 50 MG, 5 CAPSULES/DAY
     Route: 048
  4. TUCATINIB [Suspect]
     Active Substance: TUCATINIB
     Indication: HER2 POSITIVE BREAST CANCER
     Dosage: 600 MG, QD
     Route: 048
     Dates: start: 20210120, end: 20210127
  5. TUCATINIB [Suspect]
     Active Substance: TUCATINIB
     Dosage: 400 UNK
     Route: 048
     Dates: start: 20210303
  6. TRASTUZUMAB. [Suspect]
     Active Substance: TRASTUZUMAB
     Indication: HER2 POSITIVE BREAST CANCER
     Dosage: UNK
     Route: 058
     Dates: end: 20210127
  7. IRBESARTAN. [Concomitant]
     Active Substance: IRBESARTAN
     Dosage: 1/2 TABLET
     Route: 048

REACTIONS (2)
  - Botryomycosis [Recovered/Resolved]
  - Eczema [Recovered/Resolved]

NARRATIVE: CASE EVENT DATE: 20210127
